FAERS Safety Report 14641981 (Version 1)
Quarter: 2018Q1

REPORT INFORMATION
  Report Type: Spontaneous
  Country: US (occurrence: US)
  Receive Date: 20180315
  Receipt Date: 20180315
  Transmission Date: 20180509
  Serious: Yes (Other)
  Sender: FDA-Public Use
  Company Number: None

PATIENT
  Age: 58 Year
  Sex: Female
  Weight: 140 kg

DRUGS (1)
  1. ZOLEDRONIC ACID [Suspect]
     Active Substance: ZOLEDRONIC ACID
     Dosage: ?          OTHER FREQUENCY:ONCE;?
     Route: 041
     Dates: start: 20180208, end: 20180308

REACTIONS (5)
  - Myalgia [None]
  - Asthenia [None]
  - Arthralgia [None]
  - Headache [None]
  - Influenza like illness [None]

NARRATIVE: CASE EVENT DATE: 20180208
